FAERS Safety Report 17387710 (Version 1)
Quarter: 2020Q1

REPORT INFORMATION
  Report Type: Spontaneous
  Country: US (occurrence: US)
  Receive Date: 20200122
  Receipt Date: 20200122
  Transmission Date: 20200409
  Serious: Yes (Other)
  Sender: FDA-Public Use
  Company Number: None

PATIENT

DRUGS (1)
  1. LIDOCAINE 5% [Suspect]
     Active Substance: LIDOCAINE
     Indication: BACK PAIN
     Dosage: ?          QUANTITY:3 PATCHES 1 ON SIDE; ONE FOR UP TO 12 HRS WITHIN A 24 HR PERIOD?
     Route: 023
     Dates: start: 20190110, end: 20190912

REACTIONS (3)
  - Pain [None]
  - Erythema [None]
  - Skin discolouration [None]
